FAERS Safety Report 13681596 (Version 1)
Quarter: 2017Q2

REPORT INFORMATION
  Report Type: Spontaneous
  Country: GB (occurrence: GB)
  Receive Date: 20170623
  Receipt Date: 20170623
  Transmission Date: 20170830
  Serious: Yes (Other)
  Sender: FDA-Public Use
  Company Number: GB-TORRENT-00015358

PATIENT
  Age: 36 Year
  Sex: Female
  Weight: 89 kg

DRUGS (3)
  1. LANSOPRAZOL [Concomitant]
     Active Substance: LANSOPRAZOLE
  2. LITHIUM. [Concomitant]
     Active Substance: LITHIUM
  3. QUETIAPINE. [Suspect]
     Active Substance: QUETIAPINE

REACTIONS (7)
  - Sedation [Recovered/Resolved]
  - Fluid retention [Unknown]
  - Pruritus [Unknown]
  - Peripheral swelling [Unknown]
  - Joint swelling [Recovering/Resolving]
  - Hypersomnia [Recovered/Resolved]
  - Somnolence [Unknown]

NARRATIVE: CASE EVENT DATE: 20170106
